FAERS Safety Report 9808624 (Version 2)
Quarter: 2014Q1

REPORT INFORMATION
  Report Type: Spontaneous
  Country: US (occurrence: US)
  Receive Date: 20140110
  Receipt Date: 20140110
  Transmission Date: 20141002
  Serious: Yes (Other)
  Sender: FDA-Public Use
  Company Number: US-BRISTOL-MYERS SQUIBB COMPANY-19628619

PATIENT
  Sex: 0

DRUGS (3)
  1. NULOJIX [Suspect]
     Indication: RENAL TRANSPLANT
  2. PREDNISONE [Concomitant]
  3. MYCOPHENOLATE MOFETIL [Concomitant]

REACTIONS (1)
  - Leukopenia [Not Recovered/Not Resolved]
